FAERS Safety Report 8393664-1 (Version None)
Quarter: 2012Q2

REPORT INFORMATION
  Report Type: 
  Country: None (occurrence: None)
  Receive Date: 20120530
  Receipt Date: 20120521
  Transmission Date: 20120825
  Serious: Yes (Congenital Anomaly)
  Sender: FDA-Public Use
  Company Number: US-BIOGENIDEC-2012BI018557

PATIENT

DRUGS (3)
  1. AVONEX [Suspect]
     Route: 064
     Dates: start: 20090616, end: 20110101
  2. AVONEX [Suspect]
     Indication: MATERNAL EXPOSURE TIMING UNSPECIFIED
     Route: 064
     Dates: start: 20060413, end: 20071031
  3. AVONEX [Suspect]
     Route: 064
     Dates: start: 20120401

REACTIONS (1)
  - CYTOGENETIC ABNORMALITY [None]
